FAERS Safety Report 17955293 (Version 1)
Quarter: 2020Q2

REPORT INFORMATION
  Report Type: Spontaneous
  Country: CN (occurrence: CN)
  Receive Date: 20200629
  Receipt Date: 20200629
  Transmission Date: 20200714
  Serious: Yes (Disabling, Other)
  Sender: FDA-Public Use
  Company Number: CN-GLAXOSMITHKLINE-CN2020APC108698

PATIENT
  Age: 72 Year
  Sex: Female
  Weight: 62 kg

DRUGS (6)
  1. PULMICORT RESPULES [Concomitant]
     Active Substance: BUDESONIDE
     Indication: ASTHMA
  2. ATROVENT [Suspect]
     Active Substance: IPRATROPIUM BROMIDE
     Indication: ASTHMA
  3. VENTOLIN [Suspect]
     Active Substance: ALBUTEROL SULFATE
     Indication: ASTHMA
  4. PULMICORT RESPULES [Concomitant]
     Active Substance: BUDESONIDE
     Indication: MUSCLE SPASMS
     Dosage: 2 MG, BID
     Route: 055
     Dates: start: 20200611, end: 20200617
  5. ATROVENT [Suspect]
     Active Substance: IPRATROPIUM BROMIDE
     Indication: MUSCLE SPASMS
     Dosage: 0.5 MG, BID
     Route: 055
     Dates: start: 20200611, end: 20200617
  6. VENTOLIN [Suspect]
     Active Substance: ALBUTEROL SULFATE
     Indication: MUSCLE SPASMS
     Dosage: 5 MG, BID
     Route: 055
     Dates: start: 20200613, end: 20200617

REACTIONS (4)
  - Headache [Recovered/Resolved]
  - Conjunctival hyperaemia [Recovered/Resolved]
  - Apraxia [Recovering/Resolving]
  - Angle closure glaucoma [Recovering/Resolving]

NARRATIVE: CASE EVENT DATE: 20200613
